FAERS Safety Report 6418166-0 (Version None)
Quarter: 2009Q4

REPORT INFORMATION
  Report Type: 
  Country: None (occurrence: None)
  Receive Date: 20091028
  Receipt Date: 20091022
  Transmission Date: 20100525
  Serious: Yes (Other)
  Sender: FDA-Public Use
  Company Number: US-ELI_LILLY_AND_COMPANY-US200910005494

PATIENT
  Sex: Male
  Weight: 101.59 kg

DRUGS (8)
  1. BYETTA [Suspect]
     Indication: TYPE 2 DIABETES MELLITUS
     Dosage: 5 UG, 2/D
     Route: 058
     Dates: start: 20060101
  2. BYETTA [Suspect]
     Dosage: 5 UG, DAILY (1/D)
     Route: 058
  3. PROCRIT [Concomitant]
     Indication: ANAEMIA
  4. METFORMIN HCL [Concomitant]
     Indication: TYPE 2 DIABETES MELLITUS
     Dosage: UNK, 2/D
  5. LANTUS [Concomitant]
     Indication: TYPE 2 DIABETES MELLITUS
     Dosage: 60 U, EACH MORNING
     Route: 058
  6. LANTUS [Concomitant]
     Dosage: 50 U, EACH MORNING
     Route: 058
  7. NEURONTIN [Concomitant]
     Indication: NEUROPATHY PERIPHERAL
  8. XANAX [Concomitant]
     Indication: ANXIETY

REACTIONS (9)
  - APPETITE DISORDER [None]
  - BLOOD GLUCOSE INCREASED [None]
  - DECREASED APPETITE [None]
  - ENZYME ABNORMALITY [None]
  - INTENTIONAL DRUG MISUSE [None]
  - MYOCARDIAL INFARCTION [None]
  - OFF LABEL USE [None]
  - STRESS [None]
  - WEIGHT DECREASED [None]
